FAERS Safety Report 25499812 (Version 3)
Quarter: 2025Q3

REPORT INFORMATION
  Report Type: Spontaneous
  Country: JP (occurrence: JP)
  Receive Date: 20250701
  Receipt Date: 20250718
  Transmission Date: 20251020
  Serious: Yes (Other)
  Sender: BRISTOL-MYERS SQUIBB COMPANY
  Company Number: JP-BRISTOL-MYERS SQUIBB COMPANY-2025-091389

PATIENT
  Age: 52 Year
  Sex: Male

DRUGS (2)
  1. YERVOY [Suspect]
     Active Substance: IPILIMUMAB
     Indication: Pericardial mesothelioma malignant
  2. OPDIVO [Suspect]
     Active Substance: NIVOLUMAB
     Indication: Pericardial mesothelioma malignant

REACTIONS (4)
  - Fulminant type 1 diabetes mellitus [Unknown]
  - Thyroiditis [Unknown]
  - Secondary adrenocortical insufficiency [Unknown]
  - Off label use [Unknown]
